FAERS Safety Report 19324046 (Version 1)
Quarter: 2021Q2

REPORT INFORMATION
  Report Type: Spontaneous
  Country: US (occurrence: US)
  Receive Date: 20210528
  Receipt Date: 20210528
  Transmission Date: 20210717
  Serious: Yes (Other)
  Sender: FDA-Public Use
  Company Number: US-PURDUE-USA-2020-0219251

PATIENT
  Sex: Male

DRUGS (8)
  1. DILAUDID [Suspect]
     Active Substance: HYDROMORPHONE HYDROCHLORIDE
     Indication: MATERNAL EXPOSURE DURING PREGNANCY
     Dosage: UNKNOWN
     Route: 064
  2. HYDROCODONE BITARTRATE/ACETAMINOPHEN [Suspect]
     Active Substance: ACETAMINOPHEN\HYDROCODONE BITARTRATE
     Indication: MATERNAL EXPOSURE DURING PREGNANCY
     Dosage: UNKNOWN
     Route: 064
  3. MS CONTIN [Suspect]
     Active Substance: MORPHINE SULFATE
     Indication: MATERNAL EXPOSURE DURING PREGNANCY
     Dosage: UNKNOWN
     Route: 064
  4. OXYCONTIN [Suspect]
     Active Substance: OXYCODONE HYDROCHLORIDE
     Indication: MATERNAL EXPOSURE DURING PREGNANCY
     Dosage: UNKNOWN
     Route: 064
  5. OXYCODONE HCL TABLETS (RHODES 91?490) [Suspect]
     Active Substance: OXYCODONE HYDROCHLORIDE
     Indication: MATERNAL EXPOSURE DURING PREGNANCY
     Dosage: UNKNOWN
     Route: 064
  6. OXYCODONE/ ACETAMINOPHEN TABLETS [Suspect]
     Active Substance: ACETAMINOPHEN\OXYCODONE HYDROCHLORIDE
     Indication: MATERNAL EXPOSURE DURING PREGNANCY
     Dosage: UNKNOWN
     Route: 064
  7. OXYCODONE HCL CR TABLETS (SIMILAR TO NDA 22?272) [Suspect]
     Active Substance: OXYCODONE HYDROCHLORIDE
     Indication: MATERNAL EXPOSURE DURING PREGNANCY
     Dosage: UNKNOWN
     Route: 064
  8. MORPHINE SULFATE EXTENDED?RELEASE TABLETS (RHODES 74?769, 74?862) [Suspect]
     Active Substance: MORPHINE SULFATE
     Indication: MATERNAL EXPOSURE DURING PREGNANCY
     Dosage: UNKNOWN
     Route: 064

REACTIONS (3)
  - Drug withdrawal syndrome neonatal [Unknown]
  - Unevaluable event [Unknown]
  - Foetal exposure during pregnancy [Unknown]
